FAERS Safety Report 5806494-9 (Version None)
Quarter: 2008Q3

REPORT INFORMATION
  Report Type: 
  Country: None (occurrence: None)
  Receive Date: 20080710
  Receipt Date: 20080702
  Transmission Date: 20090109
  Serious: Yes (Other)
  Sender: FDA-Public Use
  Company Number: US-PFIZER INC-2008056198

PATIENT
  Sex: Female
  Weight: 96.363 kg

DRUGS (9)
  1. DETROL LA [Suspect]
     Indication: URINARY INCONTINENCE
  2. FUROSEMIDE [Interacting]
  3. POTASSIUM CHLORIDE [Concomitant]
  4. ALLOPURINOL [Concomitant]
  5. GABAPENTIN [Concomitant]
  6. RANITIDINE HCL [Concomitant]
  7. MICARDIS [Concomitant]
  8. POLYETHYLENE GLYCOL [Concomitant]
  9. ALL OTHER THERAPEUTIC PRODUCTS [Concomitant]

REACTIONS (3)
  - DRUG INTERACTION [None]
  - OEDEMA PERIPHERAL [None]
  - RENAL DISORDER [None]
